FAERS Safety Report 7448803 (Version 2)
Quarter: 2013Q4

REPORT INFORMATION
  Report Type: Spontaneous
  Country: US (occurrence: US)
  Receive Date: 20100630
  Receipt Date: 20131122
  Transmission Date: 20140711
  Serious: Yes (Other)
  Sender: FDA-Public Use
  Company Number: US-ROCHE-694388

PATIENT
  Age: 18 Year
  Sex: Male
  Weight: 108.9 kg

DRUGS (1)
  1. ACCUTANE [Suspect]
     Indication: ACNE
     Route: 048
     Dates: start: 20000720, end: 20010115

REACTIONS (6)
  - Colitis [Unknown]
  - Inflammatory bowel disease [Unknown]
  - Depression [Unknown]
  - Sacroiliitis [Unknown]
  - Chapped lips [Unknown]
  - Dry skin [Unknown]
